FAERS Safety Report 6448623-2 (Version None)
Quarter: 2009Q4

REPORT INFORMATION
  Report Type: 
  Country: None (occurrence: None)
  Receive Date: 20091120
  Receipt Date: 20091110
  Transmission Date: 20100525
  Serious: Yes (Hospitalization)
  Sender: FDA-Public Use
  Company Number: FR-PFIZER INC-2009295232

PATIENT
  Age: 87 Year
  Sex: Male

DRUGS (7)
  1. INSPRA [Suspect]
     Indication: CARDIAC FAILURE
     Dosage: 25 MG, 1X/DAY
     Route: 048
     Dates: start: 20080501, end: 20090228
  2. COUMADIN [Suspect]
     Indication: THROMBOSIS PROPHYLAXIS
     Dosage: 3.75 MG, 1X/DAY
     Route: 048
     Dates: start: 20040101
  3. COLCHIMAX [Suspect]
     Indication: GOUT
     Dosage: 1 DF, 1X/DAY
     Route: 048
     Dates: start: 20090226, end: 20090303
  4. GLUCOR [Concomitant]
     Indication: TYPE 2 DIABETES MELLITUS
     Dosage: 50 MG, 3X/DAY
     Route: 048
     Dates: start: 20090201
  5. RAMIPRIL [Concomitant]
     Indication: HYPERTENSION
     Dosage: 1 DF, 1X/DAY
     Route: 048
     Dates: start: 20040401
  6. DIFFU K [Concomitant]
     Indication: HYPOKALAEMIA
     Dosage: 1 DF, 1X/DAY
     Route: 048
     Dates: start: 20060501
  7. CARBOSYMAG [Concomitant]
     Indication: DYSPEPSIA
     Dosage: 1 DF, 3X/DAY
     Route: 048
     Dates: start: 20090101

REACTIONS (14)
  - ARTERIAL THROMBOSIS LIMB [None]
  - BLOOD FIBRINOGEN INCREASED [None]
  - BRONCHITIS [None]
  - CARDIAC FAILURE [None]
  - CONDITION AGGRAVATED [None]
  - FEMORAL ARTERY OCCLUSION [None]
  - GOUT [None]
  - INTERNATIONAL NORMALISED RATIO DECREASED [None]
  - INTERNATIONAL NORMALISED RATIO INCREASED [None]
  - PERIPHERAL ARTERIAL OCCLUSIVE DISEASE [None]
  - PERIPHERAL EMBOLISM [None]
  - SUPERINFECTION [None]
  - TRANSIENT ISCHAEMIC ATTACK [None]
  - UNDERDOSE [None]
